FAERS Safety Report 8495049-6 (Version None)
Quarter: 2012Q3

REPORT INFORMATION
  Report Type: 
  Country: None (occurrence: None)
  Receive Date: 20120709
  Receipt Date: 20120705
  Transmission Date: 20120928
  Serious: Yes (Death)
  Sender: FDA-Public Use
  Company Number: PHHY2012CA054449

PATIENT
  Sex: Male

DRUGS (8)
  1. SEROQUEL [Concomitant]
  2. CLOZARIL [Suspect]
     Dosage: 175 MG, UNK
     Route: 048
     Dates: start: 20110823
  3. TRAZODONE HCL [Concomitant]
  4. EXELON [Suspect]
  5. SINEMET [Concomitant]
  6. EFFEXOR [Concomitant]
  7. ATIVAN [Concomitant]
  8. COMTAN [Concomitant]

REACTIONS (1)
  - PNEUMONIA ASPIRATION [None]
